FAERS Safety Report 14125489 (Version 3)
Quarter: 2018Q1

REPORT INFORMATION
  Report Type: Report from Study
  Country: US (occurrence: US)
  Receive Date: 20171025
  Receipt Date: 20180223
  Transmission Date: 20180508
  Serious: Yes (Hospitalization, Other)
  Sender: FDA-Public Use
  Company Number: US-ARIAD PHARMACEUTICALS, INC-2017US009115

PATIENT
  Age: 51 Year
  Sex: Female

DRUGS (2)
  1. PONATINIB [Suspect]
     Active Substance: PONATINIB
     Indication: CHRONIC MYELOID LEUKAEMIA
     Dosage: 45 MG, QD
     Route: 048
     Dates: start: 20170817, end: 20170907
  2. METHAMPHETAMINE [Suspect]
     Active Substance: METHAMPHETAMINE
     Indication: PRODUCT USED FOR UNKNOWN INDICATION
     Dosage: UNK
     Route: 065

REACTIONS (12)
  - Hallucination [Unknown]
  - Rash [Unknown]
  - Blood pressure decreased [Recovered/Resolved]
  - Pain in extremity [Recovered/Resolved]
  - Skin burning sensation [Recovered/Resolved]
  - Atrial flutter [Unknown]
  - Skin exfoliation [Recovered/Resolved]
  - Mental status changes [Unknown]
  - Agitation [Unknown]
  - Atrial fibrillation [Unknown]
  - Heart rate increased [Recovered/Resolved]
  - Pain [Unknown]

NARRATIVE: CASE EVENT DATE: 20170907
